FAERS Safety Report 8807619 (Version 1)
Quarter: 2012Q4

REPORT INFORMATION
  Report Type: Report from Study
  Country: US (occurrence: US)
  Receive Date: 20120925
  Receipt Date: 20120925
  Transmission Date: 20130627
  Serious: No
  Sender: FDA-Public Use
  Company Number: US-UCBSA-064816

PATIENT
  Sex: Male
  Weight: 70.3 kg

DRUGS (8)
  1. CIMZIA [Suspect]
     Indication: CROHN^S DISEASE
     Route: 058
     Dates: start: 20100315, end: 20100726
  2. CIMZIA [Suspect]
     Indication: CROHN^S DISEASE
     Route: 058
     Dates: start: 20100813
  3. ALINIA [Concomitant]
     Indication: CROHN^S DISEASE
     Dosage: 500 MG
     Dates: start: 20110126
  4. PREDNISONE [Concomitant]
     Indication: CROHN^S DISEASE
     Dates: start: 201010
  5. PREDNISONE [Concomitant]
     Indication: CROHN^S DISEASE
     Dates: start: 1984, end: 1987
  6. PREDNISONE [Concomitant]
     Indication: CROHN^S DISEASE
     Dates: start: 1988, end: 1998
  7. MULTIVITAMIN [Concomitant]
  8. CALCIUM [Concomitant]

REACTIONS (1)
  - Tuberculosis [Recovering/Resolving]
